FAERS Safety Report 20419854 (Version 2)
Quarter: 2022Q4

REPORT INFORMATION
  Report Type: Spontaneous
  Country: US (occurrence: US)
  Receive Date: 20220203
  Receipt Date: 20221122
  Transmission Date: 20230113
  Serious: No
  Sender: FDA-Public Use
  Company Number: US-BIOGEN-2021BI01000662

PATIENT
  Sex: Female

DRUGS (4)
  1. TECFIDERA [Suspect]
     Active Substance: DIMETHYL FUMARATE
     Indication: Multiple sclerosis
     Route: 050
  2. TECFIDERA [Suspect]
     Active Substance: DIMETHYL FUMARATE
     Route: 050
     Dates: start: 20210419
  3. TECFIDERA [Suspect]
     Active Substance: DIMETHYL FUMARATE
     Route: 050
     Dates: start: 20210412
  4. TECFIDERA [Suspect]
     Active Substance: DIMETHYL FUMARATE
     Route: 050
     Dates: start: 20131014

REACTIONS (8)
  - White blood cell count increased [Unknown]
  - Memory impairment [Unknown]
  - Dysphonia [Unknown]
  - Allergic respiratory symptom [Unknown]
  - Laboratory test abnormal [Unknown]
  - Blood test abnormal [Unknown]
  - General physical health deterioration [Unknown]
  - Hepatic enzyme increased [Unknown]
